FAERS Safety Report 5343465-3 (Version None)
Quarter: 2007Q2

REPORT INFORMATION
  Report Type: 
  Country: None (occurrence: None)
  Receive Date: 20070531
  Receipt Date: 20070522
  Transmission Date: 20071010
  Serious: Yes (Hospitalization)
  Sender: FDA-Public Use
  Company Number: 2007-02473

PATIENT
  Age: 48 Year
  Sex: Female

DRUGS (1)
  1. TRELSTAR LA  (WITH CLIP'N JECT) (WATSON LABORATORIES)(TRIPTORELIN PAMO [Suspect]
     Indication: BREAST CANCER
     Dosage: 11.25 MG, ONCE EVERY 3 MONTHS, INTRAMUSCULAR
     Route: 030
     Dates: end: 20061212

REACTIONS (4)
  - ANGINA PECTORIS [None]
  - ARTERIOSPASM CORONARY [None]
  - CORONARY ARTERY STENOSIS [None]
  - PARAESTHESIA [None]
